FAERS Safety Report 5280176-7 (Version None)
Quarter: 2007Q1

REPORT INFORMATION
  Report Type: 
  Country: None (occurrence: None)
  Receive Date: 20070326
  Receipt Date: 20070326
  Transmission Date: 20070707
  Serious: Yes (Life-Threatening, Hospitalization)
  Sender: FDA-Public Use
  Company Number: None

PATIENT
  Age: 35 Year
  Sex: Female
  Weight: 79.3795 kg

DRUGS (1)
  1. DICLOFENAC SODIUM [Suspect]
     Indication: BACK PAIN
     Dosage: 1 TABLET BID PO  ONLY DOSE
     Route: 048

REACTIONS (5)
  - EYE PRURITUS [None]
  - HYPOAESTHESIA ORAL [None]
  - NASAL DISORDER [None]
  - SNEEZING [None]
  - STRIDOR [None]
